FAERS Safety Report 5250861-1 (Version None)
Quarter: 2007Q1

REPORT INFORMATION
  Report Type: 
  Country: None (occurrence: None)
  Receive Date: 20070228
  Receipt Date: 20060720
  Transmission Date: 20070707
  Serious: No
  Sender: FDA-Public Use
  Company Number: US-GLAXOSMITHKLINE-A0612972A

PATIENT
  Age: 15 Year
  Sex: Female

DRUGS (1)
  1. LAMICTAL [Suspect]
     Indication: COMPLEX PARTIAL SEIZURES
     Dosage: 225MG SEE DOSAGE TEXT
     Route: 048
     Dates: start: 20060101

REACTIONS (2)
  - INITIAL INSOMNIA [None]
  - SOMNOLENCE [None]
